FAERS Safety Report 8486977-6 (Version None)
Quarter: 2012Q3

REPORT INFORMATION
  Report Type: 
  Country: None (occurrence: None)
  Receive Date: 20120704
  Receipt Date: 20120626
  Transmission Date: 20120928
  Serious: Yes (Other)
  Sender: FDA-Public Use
  Company Number: PHHY2012BR033140

PATIENT
  Age: 6 Year
  Sex: Male
  Weight: 35 kg

DRUGS (7)
  1. RITALIN [Suspect]
     Dosage: 0.5 DF, TID
     Route: 048
     Dates: end: 20120606
  2. RISPERIDONE [Concomitant]
     Indication: AGITATION
     Dosage: 1 DF, DAILY
     Route: 048
     Dates: end: 20120606
  3. RITALIN [Suspect]
     Dosage: 0.5 DF, BID
     Route: 048
  4. DEPAKOTE [Concomitant]
     Dosage: 2 DF, QD
     Route: 048
     Dates: end: 20120606
  5. RITALIN [Suspect]
     Dosage: 1.5 DF, QD
     Route: 048
     Dates: end: 20120606
  6. VALPROIC ACID [Concomitant]
     Indication: ATTENTION DEFICIT/HYPERACTIVITY DISORDER
     Dosage: 2 DF, DAILY
     Route: 048
     Dates: end: 20120606
  7. RITALIN [Suspect]
     Indication: ATTENTION DEFICIT/HYPERACTIVITY DISORDER
     Dosage: 1 DF, QD
     Route: 048

REACTIONS (5)
  - ABNORMAL BEHAVIOUR [None]
  - ANXIETY [None]
  - WRONG TECHNIQUE IN DRUG USAGE PROCESS [None]
  - BINGE EATING [None]
  - WEIGHT INCREASED [None]
